FAERS Safety Report 19276843 (Version 1)
Quarter: 2021Q2

REPORT INFORMATION
  Report Type: Report from Study
  Country: KR (occurrence: KR)
  Receive Date: 20210519
  Receipt Date: 20210519
  Transmission Date: 20210717
  Serious: Yes (Death, Hospitalization)
  Sender: FDA-Public Use
  Company Number: KR-GILEAD-2021-0530868

PATIENT
  Sex: Male
  Weight: 67 kg

DRUGS (16)
  1. CLEXANE [Concomitant]
     Active Substance: ENOXAPARIN SODIUM
     Dosage: 40 MG/0?.4 ML
     Dates: start: 20210504, end: 20210509
  2. TRIAXONE [Concomitant]
     Dosage: 2 G
     Dates: start: 20210504, end: 20210506
  3. DEXAMETHASONE. [Concomitant]
     Active Substance: DEXAMETHASONE
     Dosage: UNK
     Dates: start: 20210505, end: 20210506
  4. PIRESPA [Concomitant]
     Active Substance: PIRFENIDONE
     Dosage: 200 MG
     Dates: start: 20210506, end: 20210515
  5. ISMO [Concomitant]
     Active Substance: ISOSORBIDE MONONITRATE
     Dosage: 20 MG
     Dates: end: 20210515
  6. OXYGEN. [Concomitant]
     Active Substance: OXYGEN
  7. REMDESIVIR. [Suspect]
     Active Substance: REMDESIVIR
     Dosage: 100 MG, QD
     Route: 042
     Dates: start: 20210505, end: 20210508
  8. METHYSOL [Concomitant]
     Dosage: 125 MG
     Dates: start: 20210506, end: 20210510
  9. ZEMIMET [Concomitant]
     Dosage: 50/500 MG
     Dates: end: 20210515
  10. VASTINAN MR [Concomitant]
     Dosage: 35 MG
     Dates: start: 20210504, end: 20210515
  11. CRAVIT [Concomitant]
     Active Substance: LEVOFLOXACIN
     Dosage: 750 MG/150 MG
     Dates: start: 20210504, end: 20210515
  12. NORVASC [Concomitant]
     Active Substance: AMLODIPINE BESYLATE
     Dosage: 5 MG
     Dates: end: 20210515
  13. ATACAND [Concomitant]
     Active Substance: CANDESARTAN CILEXETIL
     Dosage: 16 MG
     Dates: end: 20210515
  14. REMDESIVIR. [Suspect]
     Active Substance: REMDESIVIR
     Indication: COVID-19
     Dosage: 200 MG
     Route: 042
     Dates: start: 20210504, end: 20210504
  15. BORYUNG ACETYLCYSTEINE [Concomitant]
     Dosage: 100 MG
     Dates: end: 20210515
  16. TAZOPERAN [Concomitant]
     Dosage: 4.5 G
     Dates: start: 20210506, end: 20210515

REACTIONS (1)
  - Pneumonia [Fatal]

NARRATIVE: CASE EVENT DATE: 20210506
